FAERS Safety Report 8267990-0 (Version None)
Quarter: 2012Q2

REPORT INFORMATION
  Report Type: 
  Country: None (occurrence: None)
  Receive Date: 20120409
  Receipt Date: 20120404
  Transmission Date: 20120825
  Serious: Yes (Other)
  Sender: FDA-Public Use
  Company Number: PHHY2012CA027632

PATIENT
  Sex: Female

DRUGS (6)
  1. IMOVANE [Concomitant]
  2. SYNTHROID [Concomitant]
  3. ZOLEDRONOC ACID [Suspect]
     Dosage: UNK UKN, UNK
     Route: 042
     Dates: start: 20110511
  4. METFORMIN HCL [Concomitant]
  5. ESCITALOPRAM [Concomitant]
  6. ZOLEDRONOC ACID [Suspect]
     Indication: OSTEOPOROSIS
     Dosage: UNK UKN, UNK
     Route: 042
     Dates: start: 20100420

REACTIONS (1)
  - COLON CANCER [None]
